FAERS Safety Report 25100146 (Version 2)
Quarter: 2025Q2

REPORT INFORMATION
  Report Type: Spontaneous
  Country: RO (occurrence: RO)
  Receive Date: 20250320
  Receipt Date: 20250407
  Transmission Date: 20250717
  Serious: Yes (Other)
  Sender: ROCHE
  Company Number: RO-002147023-NVSC2025RO044687

PATIENT
  Sex: Male

DRUGS (2)
  1. XOLAIR [Suspect]
     Active Substance: OMALIZUMAB
     Indication: Product used for unknown indication
     Route: 065
     Dates: start: 202205
  2. Borenar [Concomitant]
     Indication: Product used for unknown indication
     Route: 065

REACTIONS (2)
  - Angioedema [Recovered/Resolved]
  - Bacterial urethritis [Not Recovered/Not Resolved]
